FAERS Safety Report 16737987 (Version 1)
Quarter: 2019Q3

REPORT INFORMATION
  Report Type: Spontaneous
  Country: US (occurrence: US)
  Receive Date: 20190824
  Receipt Date: 20190824
  Transmission Date: 20191005
  Serious: No
  Sender: FDA-Public Use
  Company Number: US-009507513-1908USA008681

PATIENT
  Sex: Female
  Weight: 66 kg

DRUGS (1)
  1. NEXPLANON [Suspect]
     Active Substance: ETONOGESTREL
     Dosage: 1 IMPLANT
     Route: 059
     Dates: end: 20190301

REACTIONS (3)
  - Complication associated with device [Recovered/Resolved]
  - Inappropriate schedule of product administration [Unknown]
  - Complication of device removal [Recovered/Resolved]
